FAERS Safety Report 7386192-3 (Version None)
Quarter: 2011Q1

REPORT INFORMATION
  Report Type: 
  Country: None (occurrence: None)
  Receive Date: 20110329
  Receipt Date: 20110329
  Transmission Date: 20110831
  Serious: Yes (Other)
  Sender: FDA-Public Use
  Company Number: None

PATIENT
  Age: 51 Year
  Sex: Female
  Weight: 80.7403 kg

DRUGS (1)
  1. CYMBALTA [Suspect]
     Indication: DEPRESSION
     Dosage: 20MG ONCE A DAY
     Dates: start: 20100815, end: 20110316

REACTIONS (12)
  - NECK PAIN [None]
  - DRUG INEFFECTIVE [None]
  - NAUSEA [None]
  - INFLUENZA LIKE ILLNESS [None]
  - HYPERSENSITIVITY [None]
  - DIZZINESS [None]
  - FATIGUE [None]
  - CATARACT [None]
  - HEADACHE [None]
  - DRUG WITHDRAWAL SYNDROME [None]
  - CHEST PAIN [None]
  - PARAESTHESIA [None]
